FAERS Safety Report 12964350 (Version 7)
Quarter: 2022Q2

REPORT INFORMATION
  Report Type: Spontaneous
  Country: US (occurrence: US)
  Receive Date: 20161122
  Receipt Date: 20220404
  Transmission Date: 20220721
  Serious: Yes (Hospitalization)
  Sender: FDA-Public Use
  Company Number: US-PFIZER INC-2016478916

PATIENT
  Age: 69 Year
  Sex: Female
  Weight: 95.25 kg

DRUGS (16)
  1. LYRICA [Suspect]
     Active Substance: PREGABALIN
     Indication: Back pain
     Dosage: 50 MG, THRICE A DAY
     Route: 048
     Dates: start: 201610, end: 201610
  2. LYRICA [Suspect]
     Active Substance: PREGABALIN
     Indication: Neuralgia
     Dosage: 250 MG, DAILY (50MG CAPSULE BY MOUTH FOR MORNING AND EVENING DOSES AND THREE 50MG CAPSULES BY MOUTH)
     Route: 048
     Dates: start: 201610, end: 201610
  3. LYRICA [Suspect]
     Active Substance: PREGABALIN
     Indication: Diabetic neuropathy
     Dosage: 300 MG, 1X/DAY (TAKE 1-2 CAPSULES (300 MG) AT BEDTIME)
     Route: 048
     Dates: start: 2018
  4. LYRICA [Suspect]
     Active Substance: PREGABALIN
     Indication: Type 2 diabetes mellitus
     Dosage: 150 MG
     Route: 048
  5. LYRICA [Suspect]
     Active Substance: PREGABALIN
     Dosage: TAKE 1 CAP EVERYDAY
  6. LYRICA [Suspect]
     Active Substance: PREGABALIN
     Dosage: TAKE 2 CAPSULES EVERY DAY
     Route: 048
  7. TYLENOL WITH CODEINE [Concomitant]
     Active Substance: ACETAMINOPHEN\CODEINE PHOSPHATE
     Indication: Pain
     Dosage: 30/300MG BY MOUTH ONE EVERY 6 HOURS AS NEEDED
     Route: 048
     Dates: start: 201606
  8. JANUVIA [Concomitant]
     Active Substance: SITAGLIPTIN PHOSPHATE
     Indication: Diabetes mellitus
     Dosage: 100 MG, 1X/DAY (AT DINNER MEAL)
     Route: 048
     Dates: start: 201610
  9. METFORMIN [Concomitant]
     Active Substance: METFORMIN HYDROCHLORIDE
     Indication: Diabetes mellitus
     Dosage: 1000 MG, TWICE A DAY
     Route: 048
  10. EFFEXOR [Concomitant]
     Active Substance: VENLAFAXINE HYDROCHLORIDE
     Dosage: 150 MG, DAILY
  11. LISINOPRIL [Concomitant]
     Active Substance: LISINOPRIL
     Indication: Diabetes mellitus
     Dosage: 10 MG, 1X/DAY (10MG IN THE MORNING)
     Dates: start: 2005
  12. LEVOTHYROXINE [Concomitant]
     Active Substance: LEVOTHYROXINE
     Indication: Thyroid disorder
     Dosage: 150 UG, DAILY (150MCG DAILY)
     Dates: start: 2000
  13. FENOFIBRATE [Concomitant]
     Active Substance: FENOFIBRATE
     Indication: Blood cholesterol abnormal
     Dosage: 108 MG, 1X/DAY (54MG, 2 TABLETS AFTER DINNER DAILY)
     Dates: start: 201909
  14. CHOLECALCIFEROL [Concomitant]
     Active Substance: CHOLECALCIFEROL
     Indication: Vitamin D deficiency
     Dosage: 1000 IU, DAILY (1000 UNITS DAILY)
     Dates: start: 201910
  15. MAGNESIUM [Concomitant]
     Active Substance: MAGNESIUM
     Indication: Magnesium deficiency
     Dosage: 500 MG, DAILY
     Dates: start: 2019
  16. TRESIBA [Concomitant]
     Active Substance: INSULIN DEGLUDEC
     Dosage: 55 IU, DAILY, (200UNITS, TAKES 55UNITS DAILY)
     Dates: start: 2018

REACTIONS (4)
  - Fluid retention [Recovered/Resolved]
  - Therapeutic product effect incomplete [Not Recovered/Not Resolved]
  - Pain [Recovered/Resolved]
  - Weight increased [Recovered/Resolved]

NARRATIVE: CASE EVENT DATE: 20161001
